FAERS Safety Report 5189065-X (Version None)
Quarter: 2006Q4

REPORT INFORMATION
  Report Type: 
  Country: None (occurrence: None)
  Receive Date: 20061215
  Receipt Date: 20061207
  Transmission Date: 20070319
  Serious: No
  Sender: FDA-Public Use
  Company Number: 06-206

PATIENT
  Age: 54 Year
  Sex: Female

DRUGS (8)
  1. METFORMIN HYDROCHLORIDE [Suspect]
     Indication: DIABETES MELLITUS NON-INSULIN-DEPENDENT
     Dosage: 1 TABLET DAILY
     Dates: start: 20051201
  2. VYORIN [Concomitant]
  3. LASIX [Concomitant]
  4. ACCUPRIL [Concomitant]
  5. LAMICTAL [Concomitant]
  6. ZOLOFT [Concomitant]
  7. XANAX [Concomitant]
  8. ASSORTED VITAMINS [Concomitant]

REACTIONS (2)
  - DYSGEUSIA [None]
  - PAROSMIA [None]
